FAERS Safety Report 5314930-X (Version None)
Quarter: 2007Q2

REPORT INFORMATION
  Report Type: 
  Country: None (occurrence: None)
  Receive Date: 20070502
  Receipt Date: 20070423
  Transmission Date: 20071010
  Serious: Yes (Other)
  Sender: FDA-Public Use
  Company Number: US-JNJFOC-20070405543

PATIENT
  Age: 34 Year
  Sex: Female
  Weight: 58.97 kg

DRUGS (1)
  1. RETIN-A MICRO [Suspect]
     Indication: ACNE
     Route: 061

REACTIONS (1)
  - HYPOAESTHESIA [None]
